FAERS Safety Report 9819370 (Version 2)
Quarter: 2014Q1

REPORT INFORMATION
  Report Type: Spontaneous
  Country: PE (occurrence: PE)
  Receive Date: 20140115
  Receipt Date: 20140212
  Transmission Date: 20141002
  Serious: Yes (Other)
  Sender: FDA-Public Use
  Company Number: PE-PFIZER INC-2014010043

PATIENT
  Age: 65 Year
  Sex: Male

DRUGS (3)
  1. LYRICA [Suspect]
     Indication: NEURALGIA
     Dosage: 150 MG, 1X/DAY
     Route: 048
     Dates: start: 201310
  2. LYRICA [Suspect]
     Indication: POST HERPETIC NEURALGIA
  3. ACICLOVIR [Concomitant]
     Route: 048

REACTIONS (1)
  - Ulcer haemorrhage [Recovering/Resolving]
